FAERS Safety Report 21463749 (Version 1)
Quarter: 2022Q4

REPORT INFORMATION
  Report Type: Other
  Country: None (occurrence: IN)
  Receive Date: 20221017
  Receipt Date: 20221017
  Transmission Date: 20230113
  Serious: Yes (Death, Hospitalization, Other)
  Sender: FDA-Public Use
  Company Number: IN-BIOLOGICAL E. LTD-2133898

PATIENT
  Age: 17 Year
  Sex: Female

DRUGS (1)
  1. HEPARIN SODIUM [Suspect]
     Active Substance: HEPARIN SODIUM
     Indication: Thrombosis
     Route: 065

REACTIONS (2)
  - Drug ineffective [Fatal]
  - Condition aggravated [Fatal]
